FAERS Safety Report 7161187-3 (Version None)
Quarter: 2010Q4

REPORT INFORMATION
  Report Type: 
  Country: None (occurrence: None)
  Receive Date: 20101215
  Receipt Date: 20101207
  Transmission Date: 20110411
  Serious: No
  Sender: FDA-Public Use
  Company Number: US-BIOGENIDEC-2010BI043096

PATIENT
  Sex: Female

DRUGS (1)
  1. TYSABRI [Suspect]
     Indication: MULTIPLE SCLEROSIS
     Route: 042
     Dates: start: 20091214, end: 20091214

REACTIONS (4)
  - HEMIPLEGIA [None]
  - HYPOREFLEXIA [None]
  - NEUROPATHY PERIPHERAL [None]
  - SECONDARY PROGRESSIVE MULTIPLE SCLEROSIS [None]
